FAERS Safety Report 8620301-0 (Version None)
Quarter: 2012Q3

REPORT INFORMATION
  Report Type: 
  Country: None (occurrence: None)
  Receive Date: 20120817
  Receipt Date: 20120817
  Transmission Date: 20120928
  Serious: Yes (Other)
  Sender: FDA-Public Use
  Company Number: None

PATIENT
  Age: 2 Year
  Sex: Male
  Weight: 16 kg

DRUGS (1)
  1. TESTOSTERONE [Suspect]
     Indication: BLOOD TESTOSTERONE DECREASED
     Dosage: 1 SQUIRT DAILY CUTANEOUS
     Route: 003

REACTIONS (3)
  - PRECOCIOUS PUBERTY [None]
  - BLOOD TESTOSTERONE INCREASED [None]
  - ACCIDENTAL EXPOSURE [None]
